FAERS Safety Report 8328868-7 (Version None)
Quarter: 2012Q2

REPORT INFORMATION
  Report Type: 
  Country: None (occurrence: None)
  Receive Date: 20120502
  Receipt Date: 20120420
  Transmission Date: 20120825
  Serious: Yes (Other)
  Sender: FDA-Public Use
  Company Number: FR-TEVA-335416ISR

PATIENT
  Sex: Male

DRUGS (4)
  1. JOSACINE [Suspect]
     Route: 048
     Dates: start: 20120120, end: 20120127
  2. ACETAMINOPHEN [Suspect]
     Route: 048
     Dates: start: 20120120, end: 20120127
  3. COPAXONE [Suspect]
     Indication: MULTIPLE SCLEROSIS
     Dosage: 20 MILLIGRAM;
     Route: 058
     Dates: start: 20111220, end: 20120306
  4. AUGMENTIN [Suspect]
     Dosage: 2 DOSAGE FORMS;
     Route: 048
     Dates: start: 20120113, end: 20120120

REACTIONS (2)
  - JAUNDICE [None]
  - LIVER INJURY [None]
